FAERS Safety Report 8451298 (Version 2)
Quarter: 2013Q4

REPORT INFORMATION
  Report Type: Spontaneous
  Country: US (occurrence: US)
  Receive Date: 20120309
  Receipt Date: 20131008
  Transmission Date: 20140711
  Serious: No
  Sender: FDA-Public Use
  Company Number: US-AMGEN-USASP2012000564

PATIENT
  Age: 66 Year
  Sex: Female

DRUGS (3)
  1. PROLIA [Suspect]
     Indication: OSTEOPOROSIS POSTMENOPAUSAL
     Dosage: UNK UNK, Q6MO
     Dates: start: 201112
  2. SYNTHROID [Concomitant]
  3. VYTORIN [Concomitant]

REACTIONS (4)
  - Toothache [Recovered/Resolved]
  - Tooth infection [Not Recovered/Not Resolved]
  - Tooth disorder [Unknown]
  - Tooth fracture [Unknown]
